FAERS Safety Report 20194086 (Version 4)
Quarter: 2022Q1

REPORT INFORMATION
  Report Type: Report from Study
  Country: US (occurrence: US)
  Receive Date: 20211216
  Receipt Date: 20220322
  Transmission Date: 20220423
  Serious: No
  Sender: FDA-Public Use
  Company Number: US-NOVARTISTESTPH-NVSC2021US288684

PATIENT
  Sex: Male

DRUGS (2)
  1. COSENTYX [Suspect]
     Active Substance: SECUKINUMAB
     Indication: Psoriasis
     Dosage: 300 MG, QW (LOAD WEEK 0, 1, 2, 3, 4 THEN EVERY 4 WEEKS THEREAFTER)
     Route: 058
  2. COSENTYX [Suspect]
     Active Substance: SECUKINUMAB
     Dosage: 300MG, QW(LOAD WEEK 0, 1, 2, 3, 4 THEN EVERY 4)
     Route: 058

REACTIONS (3)
  - Frustration tolerance decreased [Unknown]
  - Incorrect dose administered [Unknown]
  - Drug ineffective [Unknown]
